FAERS Safety Report 6457044-8 (Version None)
Quarter: 2009Q4

REPORT INFORMATION
  Report Type: 
  Country: None (occurrence: None)
  Receive Date: 20091125
  Receipt Date: 20091119
  Transmission Date: 20100525
  Serious: Yes (Life-Threatening, Hospitalization, Other)
  Sender: FDA-Public Use
  Company Number: A0814414A

PATIENT
  Age: 6 Year
  Sex: Male
  Weight: 22.3 kg

DRUGS (2)
  1. LAMICTAL [Suspect]
     Indication: EPILEPSY
     Dosage: 2TABS TWICE PER DAY
     Route: 048
     Dates: start: 20090501
  2. NO CONCURRENT MEDICATIONS [Concomitant]

REACTIONS (4)
  - HYPOGAMMAGLOBULINAEMIA [None]
  - IMMUNODEFICIENCY [None]
  - PNEUMOCOCCAL SEPSIS [None]
  - PYREXIA [None]
